FAERS Safety Report 6892513-8 (Version None)
Quarter: 2010Q3

REPORT INFORMATION
  Report Type: 
  Country: None (occurrence: None)
  Receive Date: 20100731
  Receipt Date: 20080604
  Transmission Date: 20110219
  Serious: No
  Sender: FDA-Public Use
  Company Number: US-PFIZER INC-2008048329

PATIENT
  Sex: Male
  Weight: 92.99 kg

DRUGS (3)
  1. NEURONTIN [Suspect]
     Indication: DIABETIC NEUROPATHY
     Dates: start: 20000101, end: 20030101
  2. ANTIHYPERTENSIVES [Concomitant]
  3. SIMVASTATIN [Concomitant]

REACTIONS (2)
  - DIZZINESS [None]
  - FATIGUE [None]
